FAERS Safety Report 4721506-1 (Version None)
Quarter: 2005Q3

REPORT INFORMATION
  Report Type: 
  Country: None (occurrence: None)
  Receive Date: 20050721
  Receipt Date: 20041026
  Transmission Date: 20060218
  Serious: Yes (Other)
  Sender: FDA-Public Use
  Company Number: US-BRISTOL-MYERS SQUIBB COMPANY-12745089

PATIENT
  Age: 58 Year
  Sex: Female

DRUGS (3)
  1. WARFARIN SODIUM [Suspect]
  2. KETEK [Suspect]
     Indication: BRONCHITIS BACTERIAL
     Route: 048
     Dates: start: 20041008, end: 20041012
  3. STEROIDS [Concomitant]
     Route: 055

REACTIONS (1)
  - INTERNATIONAL NORMALISED RATIO INCREASED [None]
